FAERS Safety Report 14072570 (Version 3)
Quarter: 2019Q1

REPORT INFORMATION
  Report Type: Spontaneous
  Country: US (occurrence: US)
  Receive Date: 20171010
  Receipt Date: 20190328
  Transmission Date: 20190417
  Serious: No
  Sender: FDA-Public Use
  Company Number: US-SA-2017SA170277

PATIENT
  Sex: Male

DRUGS (2)
  1. DUPIXENT [Suspect]
     Active Substance: DUPILUMAB
     Indication: SEBORRHOEIC DERMATITIS
     Dosage: 300 MG,QOW
     Route: 058
  2. DUPIXENT [Suspect]
     Active Substance: DUPILUMAB
     Indication: DERMATITIS ATOPIC
     Dosage: 300 MG,QOW
     Route: 058
     Dates: start: 201802

REACTIONS (8)
  - Acne [Unknown]
  - Lacrimation increased [Unknown]
  - Eye pruritus [Unknown]
  - Therapeutic response decreased [Unknown]
  - Erythema [Unknown]
  - Pruritus [Unknown]
  - Alcohol intolerance [Unknown]
  - Unevaluable event [Not Recovered/Not Resolved]
